FAERS Safety Report 8093041-7 (Version None)
Quarter: 2011Q4

REPORT INFORMATION
  Report Type: 
  Country: None (occurrence: None)
  Receive Date: 20111222
  Receipt Date: 20110826
  Transmission Date: 20120403
  Serious: Yes (Hospitalization)
  Sender: FDA-Public Use
  Company Number: UTC-009770

PATIENT
  Age: 14 Year
  Sex: Female
  Weight: 52.7 kg

DRUGS (4)
  1. TYVASO [Suspect]
     Indication: PULMONARY ARTERIAL HYPERTENSION
     Dosage: 120 MCG  (30 MCG, 4 IN 1 D), INHALATION
     Route: 055
     Dates: start: 20110804
  2. COUMADIN [Concomitant]
  3. TRACLEER [Concomitant]
  4. REVATIO [Concomitant]

REACTIONS (1)
  - SYNCOPE [None]
